FAERS Safety Report 9187326 (Version 5)
Quarter: 2014Q2

REPORT INFORMATION
  Report Type: Report from Study
  Country: JP (occurrence: JP)
  Receive Date: 20130325
  Receipt Date: 20140507
  Transmission Date: 20141212
  Serious: Yes (Disabling)
  Sender: FDA-Public Use
  Company Number: JP-ROCHE-1206110

PATIENT
  Age: 87 Year
  Sex: Female

DRUGS (6)
  1. RANIBIZUMAB [Suspect]
     Indication: AGE-RELATED MACULAR DEGENERATION
     Route: 050
     Dates: start: 20090611
  2. RANIBIZUMAB [Suspect]
     Route: 050
     Dates: start: 20090709
  3. RANIBIZUMAB [Suspect]
     Route: 050
     Dates: start: 20090817
  4. RANIBIZUMAB [Suspect]
     Route: 050
     Dates: start: 20090928
  5. RANIBIZUMAB [Suspect]
     Route: 050
     Dates: start: 20091109
  6. MOXIFLOXACIN HYDROCHLORIDE [Concomitant]
     Route: 065
     Dates: start: 200907, end: 200911

REACTIONS (1)
  - Visual acuity reduced [Unknown]
